FAERS Safety Report 8242447-1 (Version None)
Quarter: 2012Q1

REPORT INFORMATION
  Report Type: 
  Country: None (occurrence: None)
  Receive Date: 20120329
  Receipt Date: 20120319
  Transmission Date: 20120608
  Serious: Yes (Disabling, Other)
  Sender: FDA-Public Use
  Company Number: US-JNJFOC-20120212326

PATIENT
  Sex: Female

DRUGS (2)
  1. MERCAPTOPURINE [Concomitant]
     Indication: CROHN'S DISEASE
     Dosage: DATES OF THERAPY: 2 YEARS
     Route: 065
  2. REMICADE [Suspect]
     Indication: CROHN'S DISEASE
     Dosage: 6 YEAR HISTORY OF INFLIXIMAB, LAST DOSE WAS 10 YEARS AGO
     Route: 042
     Dates: start: 19991215, end: 20010501

REACTIONS (1)
  - TOXICITY TO VARIOUS AGENTS [None]
